FAERS Safety Report 6083653-4 (Version None)
Quarter: 2009Q1

REPORT INFORMATION
  Report Type: 
  Country: None (occurrence: None)
  Receive Date: 20090219
  Receipt Date: 20090212
  Transmission Date: 20090719
  Serious: Yes (Other)
  Sender: FDA-Public Use
  Company Number: US-AMGEN-QUU333404

PATIENT
  Sex: Female

DRUGS (7)
  1. NEULASTA [Suspect]
     Indication: CHEMOTHERAPY
     Route: 065
     Dates: start: 20090203
  2. TAXOTERE [Concomitant]
     Dates: start: 20090202
  3. CYTOXAN [Concomitant]
     Dates: start: 20090202
  4. IBUPROFEN TABLETS [Concomitant]
  5. COMPAZINE [Concomitant]
  6. MULTI-VITAMINS [Concomitant]
  7. CALCIUM [Concomitant]

REACTIONS (13)
  - ARTHRALGIA [None]
  - BONE PAIN [None]
  - COUGH [None]
  - EPISTAXIS [None]
  - HEADACHE [None]
  - INFLUENZA LIKE ILLNESS [None]
  - LUNG DISORDER [None]
  - MUSCULOSKELETAL PAIN [None]
  - MYALGIA [None]
  - NASAL CONGESTION [None]
  - NEPHROLITHIASIS [None]
  - OROPHARYNGEAL PAIN [None]
  - PALPITATIONS [None]
